FAERS Safety Report 9137411 (Version 1)
Quarter: 2013Q1

REPORT INFORMATION
  Report Type: Spontaneous
  Country: US (occurrence: US)
  Receive Date: 20130219
  Receipt Date: 20130219
  Transmission Date: 20140127
  Serious: Yes (Other)
  Sender: FDA-Public Use
  Company Number: US-BRISTOL-MYERS SQUIBB COMPANY-16818627

PATIENT
  Age: 73 Year
  Sex: Female
  Weight: 62.58 kg

DRUGS (3)
  1. ORENCIA [Suspect]
     Indication: RHEUMATOID ARTHRITIS
     Dosage: LAST DOSE-24JUL12
     Route: 042
  2. METHOTREXATE [Suspect]
  3. PREDNISONE [Suspect]

REACTIONS (2)
  - Rheumatoid arthritis [Unknown]
  - Hand deformity [Unknown]
